FAERS Safety Report 15491186 (Version 2)
Quarter: 2018Q4

REPORT INFORMATION
  Report Type: Spontaneous
  Country: BR (occurrence: BR)
  Receive Date: 20181012
  Receipt Date: 20181023
  Transmission Date: 20190205
  Serious: Yes (Hospitalization, Other)
  Sender: FDA-Public Use
  Company Number: BR-BRISTOL-MYERS SQUIBB COMPANY-BMS-2018-093834

PATIENT
  Age: 56 Year
  Sex: Female

DRUGS (1)
  1. GLIFAGE XR [Suspect]
     Active Substance: METFORMIN HYDROCHLORIDE
     Indication: DIABETES MELLITUS
     Dosage: 1000MG (500 MG IN THE EVENING)
     Route: 065
     Dates: start: 201804

REACTIONS (6)
  - Incisional hernia, obstructive [Recovering/Resolving]
  - Incisional hernia [Recovering/Resolving]
  - Seroma [Recovering/Resolving]
  - Impaired healing [Recovering/Resolving]
  - Blood albumin decreased [Recovering/Resolving]
  - Constipation [Unknown]

NARRATIVE: CASE EVENT DATE: 2018
